FAERS Safety Report 8608730-2 (Version None)
Quarter: 2012Q3

REPORT INFORMATION
  Report Type: 
  Country: None (occurrence: None)
  Receive Date: 20120821
  Receipt Date: 20120815
  Transmission Date: 20120928
  Serious: Yes (Death, Hospitalization)
  Sender: FDA-Public Use
  Company Number: JP-CELGENEUS-087-50794-11121258

PATIENT
  Weight: 71 kg

DRUGS (17)
  1. MEROPENEM [Concomitant]
     Route: 065
     Dates: start: 20111101, end: 20111107
  2. DORIPENEM MONOHYDRATE [Concomitant]
     Route: 065
     Dates: start: 20111119, end: 20111128
  3. ZOLOFT [Concomitant]
     Route: 065
     Dates: end: 20111128
  4. PURNOSIDE [Concomitant]
     Route: 065
     Dates: end: 20111128
  5. VIDAZA [Suspect]
     Dosage: 25 MILLIGRAM/SQ. METER
     Route: 041
     Dates: start: 20111031, end: 20111104
  6. PLATELETS [Concomitant]
     Route: 041
  7. SEROTONE [Concomitant]
     Route: 065
     Dates: start: 20110912, end: 20110916
  8. VIDAZA [Suspect]
     Dosage: 75 MILLIGRAM/SQ. METER
     Route: 041
     Dates: start: 20110912, end: 20110916
  9. RADEN [Concomitant]
     Route: 065
     Dates: end: 20111128
  10. MEILAX [Concomitant]
     Route: 065
     Dates: end: 20111128
  11. BELMATON [Concomitant]
     Route: 065
     Dates: start: 20111108, end: 20111118
  12. FUNGUARD [Concomitant]
     Route: 065
     Dates: start: 20111116, end: 20111128
  13. BEZATOL SR [Concomitant]
     Route: 065
     Dates: end: 20111128
  14. FIRSTCIN [Concomitant]
     Route: 065
     Dates: start: 20110926, end: 20111004
  15. RED BLOOD CELLS [Concomitant]
     Route: 041
  16. MAGMITT [Concomitant]
     Route: 065
     Dates: end: 20111128
  17. LEDOLPER [Concomitant]
     Route: 065
     Dates: end: 20111128

REACTIONS (2)
  - SEPSIS [None]
  - PNEUMONIA [None]
